FAERS Safety Report 19902251 (Version 2)
Quarter: 2022Q2

REPORT INFORMATION
  Report Type: Report from Study
  Country: BR (occurrence: BR)
  Receive Date: 20210930
  Receipt Date: 20220407
  Transmission Date: 20220720
  Serious: Yes (Hospitalization)
  Sender: FDA-Public Use
  Company Number: BR-JNJFOC-20210710132

PATIENT
  Age: 67 Year
  Sex: Female
  Weight: 76 kg

DRUGS (6)
  1. INFLIXIMAB [Suspect]
     Active Substance: INFLIXIMAB
     Indication: Colitis ulcerative
     Dosage: VIALS EVERY 8 WEEKS, STARTED ALMOST 1 YEAR AGO?THE LAST INFUSION WAS PERFORMED ON 18-MAR-2022.
     Route: 042
     Dates: start: 2021
  2. REMICADE [Suspect]
     Active Substance: INFLIXIMAB
     Indication: Product used for unknown indication
     Route: 042
  3. ACETAMINOPHEN [Concomitant]
     Active Substance: ACETAMINOPHEN
     Route: 065
  4. ASPIRIN [Concomitant]
     Active Substance: ASPIRIN
     Route: 065
  5. ATORVASTATIN [Concomitant]
     Active Substance: ATORVASTATIN
     Route: 065
  6. GLIFAGE [Concomitant]
     Active Substance: METFORMIN HYDROCHLORIDE
     Route: 065

REACTIONS (6)
  - Chest pain [Unknown]
  - Back pain [Unknown]
  - Memory impairment [Unknown]
  - Mass [Recovered/Resolved]
  - SARS-CoV-2 test positive [Unknown]
  - Weight increased [Unknown]
